FAERS Safety Report 20572032 (Version 2)
Quarter: 2022Q1

REPORT INFORMATION
  Report Type: Report from Study
  Country: CN (occurrence: CN)
  Receive Date: 20220309
  Receipt Date: 20220310
  Transmission Date: 20220424
  Serious: Yes (Hospitalization)
  Sender: FDA-Public Use
  Company Number: CN-FERRINGPH-2022FE00978

PATIENT
  Age: 83 Year

DRUGS (2)
  1. DEGARELIX [Suspect]
     Active Substance: DEGARELIX
     Indication: Prostate cancer
     Dosage: 80 MG, MONTHLY
     Route: 058
     Dates: start: 20211002
  2. DEGARELIX [Suspect]
     Active Substance: DEGARELIX
     Dosage: 240 MG, ONCE/SINGLE
     Route: 058
     Dates: start: 20210904

REACTIONS (6)
  - Unresponsive to stimuli [Recovering/Resolving]
  - Somnolence [Recovering/Resolving]
  - Pyrexia [Recovering/Resolving]
  - Injection site mass [Recovering/Resolving]
  - Asthenia [Recovering/Resolving]
  - Feeling cold [Recovering/Resolving]

NARRATIVE: CASE EVENT DATE: 20220122
